FAERS Safety Report 11010927 (Version 2)
Quarter: 2015Q2

REPORT INFORMATION
  Report Type: Report from Study
  Country: BR (occurrence: BR)
  Receive Date: 20150410
  Receipt Date: 20150429
  Transmission Date: 20150821
  Serious: Yes (Hospitalization)
  Sender: FDA-Public Use
  Company Number: BR-BAYER-2015-098709

PATIENT
  Age: 29 Year
  Sex: Female

DRUGS (1)
  1. BETAFERON [Suspect]
     Active Substance: INTERFERON BETA-1B
     Indication: RELAPSING-REMITTING MULTIPLE SCLEROSIS
     Dosage: 1 ML, QOD
     Route: 058
     Dates: start: 20140825

REACTIONS (7)
  - Hyperhidrosis [Recovering/Resolving]
  - Nervousness [Recovered/Resolved]
  - Gait disturbance [Not Recovered/Not Resolved]
  - Multiple sclerosis [Recovering/Resolving]
  - Balance disorder [Recovering/Resolving]
  - Hypoaesthesia [Recovering/Resolving]
  - Peripheral coldness [Recovering/Resolving]

NARRATIVE: CASE EVENT DATE: 2015
